FAERS Safety Report 18618480 (Version 1)
Quarter: 2020Q4

REPORT INFORMATION
  Report Type: Spontaneous
  Country: DE (occurrence: DE)
  Receive Date: 20201215
  Receipt Date: 20201215
  Transmission Date: 20210114
  Serious: Yes (Other)
  Sender: FDA-Public Use
  Company Number: DE-MYLANLABS-2020M1101471

PATIENT
  Age: 73 Year
  Sex: Male

DRUGS (1)
  1. CANDESARTAN. [Suspect]
     Active Substance: CANDESARTAN
     Indication: PRODUCT USED FOR UNKNOWN INDICATION
     Dosage: USAGE FOR LONGER THAN 2 YEARS ON MEDICAL SPECIALIST ADVICE
     Dates: end: 202006

REACTIONS (4)
  - Chest discomfort [Recovered/Resolved]
  - Sleep disorder [Recovered/Resolved]
  - Respiratory distress [Recovered/Resolved]
  - Hyperhidrosis [Recovered/Resolved]
